FAERS Safety Report 9778745 (Version 2)
Quarter: 2013Q4

REPORT INFORMATION
  Report Type: Spontaneous
  Country: US (occurrence: US)
  Receive Date: 20131223
  Receipt Date: 20131223
  Transmission Date: 20140711
  Serious: No
  Sender: FDA-Public Use
  Company Number: US-GILEAD-2010-0029397

PATIENT
  Age: 38 Year
  Sex: Female
  Weight: 66.68 kg

DRUGS (1)
  1. ATRIPLA [Suspect]
     Indication: HIV INFECTION
     Dates: start: 20090709

REACTIONS (1)
  - Paraesthesia [Unknown]
